FAERS Safety Report 5492000-8 (Version None)
Quarter: 2007Q4

REPORT INFORMATION
  Report Type: 
  Country: None (occurrence: None)
  Receive Date: 20071022
  Receipt Date: 20071015
  Transmission Date: 20080405
  Serious: No
  Sender: FDA-Public Use
  Company Number: B0489699A

PATIENT
  Age: 69 Year
  Sex: Female

DRUGS (1)
  1. VALTREX [Suspect]
     Indication: GENITAL HERPES
     Dosage: 500MG PER DAY
     Route: 048
     Dates: start: 20070123

REACTIONS (3)
  - HAEMOGLOBIN DECREASED [None]
  - PLATELET COUNT DECREASED [None]
  - WHITE BLOOD CELL COUNT DECREASED [None]
